FAERS Safety Report 4891849-X (Version None)
Quarter: 2006Q1

REPORT INFORMATION
  Report Type: 
  Country: None (occurrence: None)
  Receive Date: 20060124
  Receipt Date: 20060124
  Transmission Date: 20060701
  Serious: Yes (Death, Life-Threatening, Hospitalization)
  Sender: FDA-Public Use
  Company Number: None

PATIENT
  Age: 22 Year
  Sex: Male
  Weight: 80 kg

DRUGS (4)
  1. NAPROSYN [Suspect]
     Indication: MIGRAINE
     Dosage: 500 MG OM PO
     Route: 048
     Dates: start: 20050101, end: 20050122
  2. PONSTAN 250 MG [Suspect]
     Indication: JOINT INSTABILITY
     Dosage: 500 MG TDS PO
     Route: 048
     Dates: start: 20001201, end: 20041231
  3. FAMOTIDINE [Concomitant]
  4. NAPROSYN [Concomitant]

REACTIONS (3)
  - GASTRIC HAEMORRHAGE [None]
  - HAEMATEMESIS [None]
  - MELAENA [None]
